FAERS Safety Report 10196078 (Version 1)
Quarter: 2014Q2

REPORT INFORMATION
  Report Type: Spontaneous
  Country: JP (occurrence: None)
  Receive Date: 20140521
  Receipt Date: 20140521
  Transmission Date: 20141212
  Serious: Yes (Other)
  Sender: FDA-Public Use
  Company Number: JP-20140173

PATIENT
  Age: 33 Year
  Sex: Male

DRUGS (1)
  1. LIPIODOL ULTRA FLUIDE (ETHIODIZED OIL), UNKNOWN [Suspect]
     Indication: THERAPEUTIC PROCEDURE
     Route: 050

REACTIONS (3)
  - Off label use [None]
  - Pneumonia [None]
  - Fatigue [None]
